FAERS Safety Report 18711787 (Version 1)
Quarter: 2021Q1

REPORT INFORMATION
  Report Type: Spontaneous
  Country: US (occurrence: US)
  Receive Date: 20210106
  Receipt Date: 20210106
  Transmission Date: 20210419
  Serious: Yes (Other)
  Sender: FDA-Public Use
  Company Number: None

PATIENT
  Age: 32 Year
  Sex: Male
  Weight: 55.8 kg

DRUGS (1)
  1. LAMOTRIGINE 200MG [Suspect]
     Active Substance: LAMOTRIGINE
     Indication: FRONTAL LOBE EPILEPSY
     Dates: start: 20150114, end: 20161213

REACTIONS (1)
  - Seizure [None]

NARRATIVE: CASE EVENT DATE: 20150114
